FAERS Safety Report 21592608 (Version 1)
Quarter: 2022Q4

REPORT INFORMATION
  Report Type: Spontaneous
  Country: US (occurrence: None)
  Receive Date: 20221112
  Receipt Date: 20221112
  Transmission Date: 20230112
  Serious: No
  Sender: FDA-Public Use
  Company Number: None

PATIENT
  Age: 81 Year
  Sex: Female
  Weight: 60.33 kg

DRUGS (22)
  1. LENALIDOMIDE [Suspect]
     Active Substance: LENALIDOMIDE
     Indication: Plasma cell myeloma
     Dosage: 15MG DAILY ORAL- 21 DAYS ON, 7 D OFF
     Route: 048
     Dates: start: 20220924
  2. ALLOPURINOL [Concomitant]
     Active Substance: ALLOPURINOL
  3. AMLODIPINE [Concomitant]
     Active Substance: AMLODIPINE BESYLATE
  4. ATENOLOL [Concomitant]
     Active Substance: ATENOLOL
  5. ATORVASTATIN [Concomitant]
     Active Substance: ATORVASTATIN
  6. CALCITRIOL [Concomitant]
     Active Substance: CALCITRIOL
  7. CALCIUM [Concomitant]
     Active Substance: CALCIUM
  8. DEXAMETHASONE [Concomitant]
     Active Substance: DEXAMETHASONE
  9. ELIQUIS [Concomitant]
     Active Substance: APIXABAN
  10. ESCITALOPRAM [Concomitant]
     Active Substance: ESCITALOPRAM OXALATE
  11. FUROSEMIDE [Concomitant]
     Active Substance: FUROSEMIDE
  12. GABAPENTIN [Concomitant]
     Active Substance: GABAPENTIN
  13. LEVEMIR [Concomitant]
     Active Substance: INSULIN DETEMIR
  14. Lisinoplil [Concomitant]
  15. LUTEIN [Concomitant]
     Active Substance: LUTEIN
  16. MAGNESIUM OXIDE [Concomitant]
     Active Substance: MAGNESIUM OXIDE
  17. VITAMINS [Concomitant]
     Active Substance: VITAMINS
  18. MYCOPHENOLIC ACID [Concomitant]
     Active Substance: MYCOPHENOLIC ACID
  19. ONDANSETRON [Concomitant]
     Active Substance: ONDANSETRON
  20. TACROLIMUS [Concomitant]
     Active Substance: TACROLIMUS
  21. ULTRACET [Concomitant]
     Active Substance: ACETAMINOPHEN\TRAMADOL HYDROCHLORIDE
  22. VITAMIN D3 [Concomitant]
     Active Substance: CHOLECALCIFEROL

REACTIONS (2)
  - Cardiac failure congestive [None]
  - Therapy interrupted [None]

NARRATIVE: CASE EVENT DATE: 20221111
